FAERS Safety Report 7454819-3 (Version None)
Quarter: 2011Q2

REPORT INFORMATION
  Report Type: 
  Country: None (occurrence: None)
  Receive Date: 20110503
  Receipt Date: 20100713
  Transmission Date: 20111010
  Serious: No
  Sender: FDA-Public Use
  Company Number: US-PFIZER INC-2010088147

PATIENT
  Sex: Female
  Weight: 54.422 kg

DRUGS (2)
  1. DEPO-PROVERA [Suspect]
     Dosage: UNK
     Route: 030
     Dates: start: 20100401
  2. DEPO-PROVERA [Suspect]
     Indication: CONTRACEPTION
     Dosage: UNK
     Route: 030
     Dates: start: 20100101

REACTIONS (3)
  - MENORRHAGIA [None]
  - METRORRHAGIA [None]
  - WEIGHT INCREASED [None]
